FAERS Safety Report 4296960-2 (Version None)
Quarter: 2004Q1

REPORT INFORMATION
  Report Type: 
  Country: None (occurrence: None)
  Receive Date: 20040213
  Receipt Date: 20040205
  Transmission Date: 20041129
  Serious: Yes (Death, Other)
  Sender: FDA-Public Use
  Company Number: 200410047BYL

PATIENT
  Age: 73 Year
  Sex: Male

DRUGS (7)
  1. CIPROXAN IV (CIPROFLOXACIN) [Suspect]
  2. AMPICILLIN [Suspect]
  3. TAKESULIN (CEFSULODIN SODIUM) [Suspect]
  4. ERYTHROMYCIN [Suspect]
  5. DIFLUCAN [Suspect]
  6. ELASPOL (SIVELESTAT) [Suspect]
  7. ANTINEOPLASTIC AGENTS [Suspect]

REACTIONS (2)
  - HEPATIC FUNCTION ABNORMAL [None]
  - MULTI-ORGAN FAILURE [None]
